FAERS Safety Report 21830622 (Version 4)
Quarter: 2023Q1

REPORT INFORMATION
  Report Type: Report from Study
  Country: US (occurrence: US)
  Receive Date: 20230106
  Receipt Date: 20230120
  Transmission Date: 20230418
  Serious: Yes (Hospitalization, Other)
  Sender: FDA-Public Use
  Company Number: US-GILEAD-2023-0611747

PATIENT
  Sex: Female

DRUGS (4)
  1. AMBRISENTAN [Suspect]
     Active Substance: AMBRISENTAN
     Indication: Pulmonary arterial hypertension
     Dosage: 10 MG, QD
     Route: 048
     Dates: start: 20201201
  2. WARFARIN [Concomitant]
     Active Substance: WARFARIN
  3. ADCIRCA [Concomitant]
     Active Substance: TADALAFIL
  4. TYVASO [Concomitant]
     Active Substance: TREPROSTINIL

REACTIONS (10)
  - Nerve compression [Unknown]
  - Pneumonia [Unknown]
  - Temporomandibular joint syndrome [Unknown]
  - Muscle spasms [Unknown]
  - Facial pain [Unknown]
  - Dry eye [Unknown]
  - Swelling face [Unknown]
  - Periorbital swelling [Unknown]
  - Product dose omission issue [Unknown]
  - Pain in extremity [Not Recovered/Not Resolved]
